FAERS Safety Report 15073440 (Version 1)
Quarter: 2018Q2

REPORT INFORMATION
  Report Type: Spontaneous
  Country: PR (occurrence: PR)
  Receive Date: 20180627
  Receipt Date: 20180627
  Transmission Date: 20180711
  Serious: No
  Sender: FDA-Public Use
  Company Number: PR-PFIZER INC-2018256784

PATIENT
  Sex: Male

DRUGS (1)
  1. EUCRISA [Suspect]
     Active Substance: CRISABOROLE
     Dosage: UNK

REACTIONS (1)
  - Burning sensation [Unknown]
